FAERS Safety Report 8967308 (Version 1)
Quarter: 2012Q4

REPORT INFORMATION
  Report Type: 
  Country: US (occurrence: US)
  Receive Date: 20121214
  Receipt Date: 20121214
  Transmission Date: 20130627
  Serious: No
  Sender: FDA-Public Use
  Company Number: US-GLAXOSMITHKLINE-A0988666A

PATIENT
  Sex: Female

DRUGS (4)
  1. FLONASE [Suspect]
     Indication: HYPERSENSITIVITY
     Route: 045
  2. Z-PAK [Suspect]
     Indication: HYPERSENSITIVITY
     Route: 048
  3. BENICAR [Concomitant]
  4. ASPIRIN [Concomitant]

REACTIONS (5)
  - Headache [Unknown]
  - Anxiety [Not Recovered/Not Resolved]
  - Adverse event [Unknown]
  - Sinus headache [Not Recovered/Not Resolved]
  - Drug ineffective [Unknown]
